FAERS Safety Report 9578311 (Version 1)
Quarter: 2013Q4

REPORT INFORMATION
  Report Type: Spontaneous
  Country: US (occurrence: US)
  Receive Date: 20131001
  Receipt Date: 20131001
  Transmission Date: 20140711
  Serious: No
  Sender: FDA-Public Use
  Company Number: US-AMGEN-USASP2013012139

PATIENT
  Sex: Male
  Weight: 117.91 kg

DRUGS (20)
  1. ENBREL [Suspect]
     Indication: PSORIATIC ARTHROPATHY
     Dosage: 50 MG, UNK
     Route: 058
     Dates: start: 2010, end: 2012
  2. ALLOPURINOL [Concomitant]
     Dosage: UNK
  3. ASPIRIN [Concomitant]
     Dosage: UNK
  4. CELEBREX [Concomitant]
     Dosage: UNK
  5. CHANTIX [Concomitant]
     Dosage: UNK
  6. CLARITIN                           /00413701/ [Concomitant]
     Dosage: UNK
  7. FAMOTIDINE [Concomitant]
     Dosage: UNK
  8. FLAXSEED OIL [Concomitant]
     Dosage: UNK
  9. FLONASE [Concomitant]
     Dosage: UNK
  10. HYDROCHLOROTHIAZIDE [Concomitant]
     Dosage: UNK
  11. INDOMETHACIN                       /00003801/ [Concomitant]
     Dosage: UNK
  12. LEVITRA [Concomitant]
     Dosage: UNK
  13. LOTREL [Concomitant]
     Dosage: UNK
  14. MULTIVITAMINS, PLAIN [Concomitant]
     Dosage: UNK
  15. OXYBUTYNIN [Concomitant]
     Dosage: UNK
  16. PERCOCET                           /00446701/ [Concomitant]
     Dosage: UNK
  17. STELARA [Concomitant]
     Dosage: UNK
  18. TACLONEX [Concomitant]
     Dosage: UNK
  19. TRICOR                             /00090101/ [Concomitant]
     Dosage: UNK
  20. ZOCOR [Concomitant]
     Dosage: UNK

REACTIONS (1)
  - Pain [Not Recovered/Not Resolved]
